FAERS Safety Report 10373907 (Version 4)
Quarter: 2014Q4

REPORT INFORMATION
  Report Type: Report from Study
  Country: CL (occurrence: CL)
  Receive Date: 20140809
  Receipt Date: 20141024
  Transmission Date: 20150528
  Serious: Yes (Hospitalization, Other)
  Sender: FDA-Public Use
  Company Number: PHHY2014CL097829

PATIENT
  Sex: Female

DRUGS (3)
  1. ATEMPERATOR//VALPROATE MAGNESIUM [Concomitant]
     Indication: EPILEPSY
     Dosage: UNK
     Route: 065
  2. TRADOX [Concomitant]
     Indication: EPILEPSY
     Dosage: UNK
     Route: 065
  3. LEPONEX [Suspect]
     Active Substance: CLOZAPINE
     Indication: PRODUCT USED FOR UNKNOWN INDICATION
     Dosage: 50 MG, UNK
     Route: 048
     Dates: start: 19980601

REACTIONS (9)
  - Aspiration [Not Recovered/Not Resolved]
  - Inflammation [Unknown]
  - Fall [Unknown]
  - Seizure [Not Recovered/Not Resolved]
  - Pain in extremity [Not Recovered/Not Resolved]
  - Pneumonia aspiration [Not Recovered/Not Resolved]
  - Ankle fracture [Not Recovered/Not Resolved]
  - Pulmonary oedema [Recovered/Resolved]
  - Abasia [Not Recovered/Not Resolved]

NARRATIVE: CASE EVENT DATE: 20140803
